FAERS Safety Report 13908221 (Version 1)
Quarter: 2017Q3

REPORT INFORMATION
  Report Type: Spontaneous
  Country: US (occurrence: US)
  Receive Date: 20170825
  Receipt Date: 20170825
  Transmission Date: 20171127
  Serious: No
  Sender: FDA-Public Use
  Company Number: US-TEIKOKU PHARMA USA-TPU2017-00469

PATIENT
  Sex: Female
  Weight: 69.92 kg

DRUGS (2)
  1. LIDOCAINE PATCH [Suspect]
     Active Substance: LIDOCAINE
     Indication: OSTEOPOROSIS
     Dosage: 1-2 PATCHES ON LOWER BACK FOR 12 HOURS
     Route: 061
     Dates: end: 2016
  2. ABOUT 6 MEDICATOINS [Concomitant]

REACTIONS (3)
  - Colostomy [Unknown]
  - Disability [Unknown]
  - Deafness [Unknown]

NARRATIVE: CASE EVENT DATE: 2013
